FAERS Safety Report 10056474 (Version 2)
Quarter: 2014Q2

REPORT INFORMATION
  Report Type: Spontaneous
  Country: US (occurrence: US)
  Receive Date: 20140403
  Receipt Date: 20140506
  Transmission Date: 20141212
  Serious: Yes (Hospitalization, Other)
  Sender: FDA-Public Use
  Company Number: US-BMSGILMSD-2014-0098311

PATIENT
  Age: 68 Year
  Sex: Male
  Weight: 74.38 kg

DRUGS (6)
  1. ATRIPLA [Suspect]
     Indication: PRODUCT USED FOR UNKNOWN INDICATION
     Dosage: UNK
     Route: 065
  2. AMLODIPINE [Concomitant]
     Dosage: UNK
  3. ATENOLOL [Concomitant]
     Dosage: UNK
  4. DOXAZOSIN [Concomitant]
     Dosage: UNK
  5. FOLIC ACID [Concomitant]
     Dosage: UNK
  6. XANAX [Concomitant]
     Dosage: UNK

REACTIONS (4)
  - Hyperkalaemia [Recovered/Resolved]
  - Renal failure acute [Recovered/Resolved with Sequelae]
  - Blood creatinine increased [Unknown]
  - Confusional state [Unknown]
